FAERS Safety Report 20430268 (Version 1)
Quarter: 2022Q1

REPORT INFORMATION
  Report Type: Report from Study
  Country: AU (occurrence: AU)
  Receive Date: 20220204
  Receipt Date: 20220204
  Transmission Date: 20220423
  Serious: Yes (Hospitalization)
  Sender: FDA-Public Use
  Company Number: 20P-008-77116-00

PATIENT

DRUGS (29)
  1. PEGASPARGASE [Suspect]
     Active Substance: PEGASPARGASE
     Indication: Acute lymphocytic leukaemia
     Dosage: 1250 IU/M2, SINGLE
     Route: 042
     Dates: start: 20191230, end: 20191230
  2. PEGASPARGASE [Suspect]
     Active Substance: PEGASPARGASE
     Dosage: 1250 IU/M2, SINGLE
     Route: 042
     Dates: start: 20200120, end: 20200120
  3. VENETOCLAX [Suspect]
     Active Substance: VENETOCLAX
     Indication: Acute lymphocytic leukaemia
     Dosage: 200 MG, UNK
     Route: 048
     Dates: start: 20191230, end: 20191230
  4. VENETOCLAX [Suspect]
     Active Substance: VENETOCLAX
     Dosage: 400 MG
     Route: 048
     Dates: start: 20191231, end: 20200112
  5. VENETOCLAX [Suspect]
     Active Substance: VENETOCLAX
     Dosage: 400 MG
     Route: 048
     Dates: start: 20190115, end: 20200119
  6. NAVITOCLAX [Suspect]
     Active Substance: NAVITOCLAX
     Indication: Acute lymphocytic leukaemia
     Dosage: 50 MG, QD
     Route: 048
     Dates: start: 20200101, end: 20200112
  7. NAVITOCLAX [Suspect]
     Active Substance: NAVITOCLAX
     Dosage: 50 MG, QD
     Route: 048
     Dates: start: 20200115, end: 20200119
  8. NAVITOCLAX [Suspect]
     Active Substance: NAVITOCLAX
     Dosage: 150 UNK, QD
     Route: 048
     Dates: start: 20200218
  9. DEXAMETHASONE [Suspect]
     Active Substance: DEXAMETHASONE
     Indication: Acute lymphocytic leukaemia
     Dosage: 20 MG/M2, BID
     Route: 048
     Dates: start: 20191230, end: 20200103
  10. DEXAMETHASONE [Suspect]
     Active Substance: DEXAMETHASONE
     Dosage: 20 MG/M2, BID
     Route: 048
     Dates: start: 20200120, end: 20200124
  11. VINCRISTINE SULFATE [Suspect]
     Active Substance: VINCRISTINE SULFATE
     Indication: Acute lymphocytic leukaemia
     Dosage: 1.5 MG/M2, UNK
     Route: 042
     Dates: start: 20191230, end: 20191230
  12. VINCRISTINE SULFATE [Suspect]
     Active Substance: VINCRISTINE SULFATE
     Dosage: 1.5 MG/M2, UNK
     Route: 042
     Dates: start: 20200106, end: 20200106
  13. VINCRISTINE SULFATE [Suspect]
     Active Substance: VINCRISTINE SULFATE
     Dosage: 1.5 MG/M2, UNK
     Route: 042
     Dates: start: 20200120, end: 20200120
  14. VINCRISTINE SULFATE [Suspect]
     Active Substance: VINCRISTINE SULFATE
     Dosage: 1.5 MG/M2, UNK
     Route: 042
     Dates: start: 20200128, end: 20200128
  15. TN UNSPECIFIED [Concomitant]
     Indication: Antiviral prophylaxis
     Dosage: UNK
     Route: 048
  16. TN UNSPECIFIED [Concomitant]
     Indication: Antifungal prophylaxis
     Dosage: 160/800 MG BID ON MONDAYS AND THURSDAY
     Route: 048
     Dates: start: 201803
  17. DOCUSATE SODIUM\SENNOSIDES A AND B [Concomitant]
     Active Substance: DOCUSATE SODIUM\SENNOSIDES A AND B
     Indication: Constipation
     Dosage: 1 DF, PRN
     Route: 048
     Dates: start: 2018
  18. TN UNSPECIFIED [Concomitant]
     Indication: Osteoporosis prophylaxis
     Dosage: 25 MG, UNK
     Route: 048
     Dates: start: 201804
  19. TN UNSPECIFIED [Concomitant]
     Indication: Dry eye
     Dosage: 1 DROP, HOURLY
     Route: 061
     Dates: start: 201912
  20. TN UNSPECIFIED [Concomitant]
     Indication: Dry eye
     Dosage: 1 DROP, TID
     Route: 061
     Dates: start: 201912
  21. Acuafil [Concomitant]
     Indication: Dry eye
     Dosage: 1 DROP, PRN
     Route: 061
     Dates: start: 201912
  22. TN UNSPECIFIED [Concomitant]
     Indication: Dry eye
     Dosage: 1 DROP, UNK
     Route: 061
     Dates: start: 201912
  23. Bio Magnesium [Concomitant]
     Indication: Hypomagnesaemia
     Dosage: 1 DF, BID
     Route: 048
     Dates: start: 20191031
  24. TN UNSPECIFIED [Concomitant]
     Indication: Gastrooesophageal reflux disease
     Dosage: 40 MG, UNK
     Route: 048
     Dates: start: 2019
  25. TN UNSPECIFIED [Concomitant]
     Indication: Insomnia
     Dosage: 10 MG, UNK
     Route: 048
     Dates: start: 20191231
  26. TN UNSPECIFIED [Concomitant]
     Indication: Nausea
     Dosage: 8 MG, UNK
     Route: 048
     Dates: start: 20200110
  27. TN UNSPECIFIED [Concomitant]
     Indication: Infection prophylaxis
     Dosage: 300 MG, QD
     Route: 048
     Dates: start: 20200129
  28. TN UNSPECIFIED [Concomitant]
     Indication: Tumour lysis syndrome
     Dosage: 0.9% 1000 ML
     Route: 048
     Dates: start: 20191229, end: 20200102
  29. TN UNSPECIFIED [Concomitant]
     Indication: Prophylaxis

REACTIONS (1)
  - Neutropenic colitis [Recovered/Resolved]

NARRATIVE: CASE EVENT DATE: 20200213
